FAERS Safety Report 16804478 (Version 3)
Quarter: 2019Q4

REPORT INFORMATION
  Report Type: Spontaneous
  Country: US (occurrence: US)
  Receive Date: 20190913
  Receipt Date: 20191028
  Transmission Date: 20200122
  Serious: No
  Sender: FDA-Public Use
  Company Number: US-PFIZER INC-2019395751

PATIENT
  Age: 82 Year
  Sex: Male
  Weight: 72.57 kg

DRUGS (6)
  1. OMEPRAZOLE. [Concomitant]
     Active Substance: OMEPRAZOLE
     Indication: ABDOMINAL PAIN UPPER
     Dosage: 20 MG, 1X/DAY, [20 MG CAPSULE TAKEN BY MOUTH ONCE DAILY]
     Route: 048
  2. LATANOPROST. [Suspect]
     Active Substance: LATANOPROST
     Indication: INTRAOCULAR PRESSURE INCREASED
     Dosage: UNK
     Dates: start: 20190907, end: 20190910
  3. PRAVASTATIN. [Concomitant]
     Active Substance: PRAVASTATIN
     Indication: BLOOD CHOLESTEROL INCREASED
     Dosage: 40 MG, 1X/DAY, [40 MG TABLET TAKEN BY MOUTH ONCE DAILY]
     Route: 048
  4. LATANOPROST. [Suspect]
     Active Substance: LATANOPROST
     Dosage: UNK, DAILY (1 COUNT BOTTLE OF 2.5ML SOLUTION IN 5ML BOTTLE)
     Route: 047
     Dates: start: 20190911
  5. LATANOPROST. [Suspect]
     Active Substance: LATANOPROST
     Dosage: UNK (50 MCG/2.5 ML )
  6. XARELTO [Concomitant]
     Active Substance: RIVAROXABAN
     Indication: ATRIAL FIBRILLATION
     Dosage: 20 MG, 1X/DAY, [20 MG TABLET BY MOUTH ONCE DAILY]
     Route: 048
     Dates: start: 201807

REACTIONS (5)
  - Eye pain [Recovering/Resolving]
  - Product container seal issue [Unknown]
  - Eye irritation [Recovering/Resolving]
  - Poor quality product administered [Unknown]
  - Ocular hyperaemia [Recovering/Resolving]

NARRATIVE: CASE EVENT DATE: 20190907
